FAERS Safety Report 7216912-X (Version None)
Quarter: 2011Q1

REPORT INFORMATION
  Report Type: 
  Country: None (occurrence: None)
  Receive Date: 20110110
  Receipt Date: 20101227
  Transmission Date: 20110831
  Serious: Yes (Death, Life-Threatening, Hospitalization)
  Sender: FDA-Public Use
  Company Number: JP-AMGEN-JPNCT2010004057

PATIENT

DRUGS (16)
  1. NAUZELIN [Concomitant]
     Route: 048
  2. PARIET [Concomitant]
     Route: 048
  3. ANTIHISTAMINES [Concomitant]
     Indication: PROPHYLAXIS
     Route: 065
  4. CORTICOSTEROIDS [Concomitant]
     Indication: PROPHYLAXIS
     Route: 065
  5. BONALON [Concomitant]
     Route: 048
  6. EMEND [Concomitant]
     Route: 048
  7. WARKMIN [Concomitant]
     Route: 048
  8. DECADRON PHOSPHATE [Concomitant]
  9. RESTAMIN [Concomitant]
     Route: 048
  10. TSUMURA HANGE-SHASHIN-TO EXTRACT [Concomitant]
     Route: 048
  11. FLUOROURACIL [Suspect]
     Indication: COLORECTAL CANCER
     Route: 041
     Dates: start: 20100908, end: 20101006
  12. CALCIUM LEVOFOLINATE [Concomitant]
     Route: 041
     Dates: start: 20100908, end: 20101006
  13. ALOXI [Concomitant]
     Route: 042
  14. PANITUMUMAB [Suspect]
     Indication: COLORECTAL CANCER
     Dosage: 6 MG/KG, Q2WK
     Route: 041
     Dates: start: 20100908, end: 20101006
  15. IRINOTECAN HYDROCHLORIDE [Suspect]
     Indication: COLORECTAL CANCER
     Route: 041
     Dates: start: 20100908, end: 20101006
  16. CALCIUM LEVOFOLINATE [Concomitant]
     Indication: COLORECTAL CANCER
     Dosage: UNK UNK, Q2WK
     Route: 041
     Dates: start: 20100908, end: 20101006

REACTIONS (5)
  - DERMATITIS ACNEIFORM [None]
  - PLATELET COUNT DECREASED [None]
  - GASTROENTERITIS [None]
  - FEBRILE NEUTROPENIA [None]
  - PNEUMONIA ASPIRATION [None]
